FAERS Safety Report 18249264 (Version 1)
Quarter: 2020Q3

REPORT INFORMATION
  Report Type: Spontaneous
  Country: BR (occurrence: BR)
  Receive Date: 20200909
  Receipt Date: 20200909
  Transmission Date: 20201103
  Serious: Yes (Other)
  Sender: FDA-Public Use
  Company Number: BR-009507513-2005BRA000087

PATIENT
  Age: 23 Year
  Sex: Female
  Weight: 54 kg

DRUGS (5)
  1. NUVARING [Suspect]
     Active Substance: ETHINYL ESTRADIOL\ETONOGESTREL
     Indication: CONTRACEPTION
     Dosage: 1 RING FOR 3 WEEKS AND A 7 DAYS OF FREE CONTRACEPTIVE PAUSE
     Route: 067
     Dates: start: 20200825, end: 20200901
  2. NUVARING [Suspect]
     Active Substance: ETHINYL ESTRADIOL\ETONOGESTREL
     Indication: CONTRACEPTION
     Dosage: 1 RING FOR 3 WEEKS AND A 7 DAYS OF FREE CONTRACEPTIVE PAUSE
     Route: 067
     Dates: start: 20200407, end: 20200422
  3. NUVARING [Suspect]
     Active Substance: ETHINYL ESTRADIOL\ETONOGESTREL
     Dosage: 1 RING FOR 3 WEEKS AND A 7 DAYS OF FREE CONTRACEPTIVE PAUSE
     Route: 067
     Dates: start: 20200901
  4. NUVARING [Suspect]
     Active Substance: ETHINYL ESTRADIOL\ETONOGESTREL
     Dosage: 1 RING FOR 3 WEEKS AND A 7 DAYS OF FREE CONTRACEPTIVE PAUSE
     Route: 067
     Dates: start: 20200422
  5. NUVARING [Suspect]
     Active Substance: ETHINYL ESTRADIOL\ETONOGESTREL
     Indication: CONTRACEPTION
     Dosage: 1 RING FOR 3 WEEKS AND A 7 DAYS OF FREE CONTRACEPTIVE PAUSE
     Route: 067
     Dates: start: 2018

REACTIONS (6)
  - Medical device site pain [Unknown]
  - Device breakage [Unknown]
  - Hypothyroidism [Unknown]
  - Medical device site irritation [Unknown]
  - Medical device site discomfort [Recovered/Resolved]
  - Device breakage [Unknown]

NARRATIVE: CASE EVENT DATE: 2018
